FAERS Safety Report 5806760-7 (Version None)
Quarter: 2008Q3

REPORT INFORMATION
  Report Type: 
  Country: None (occurrence: None)
  Receive Date: 20080709
  Receipt Date: 20080709
  Transmission Date: 20090109
  Serious: Yes (Disabling)
  Sender: FDA-Public Use
  Company Number: None

PATIENT
  Sex: Female

DRUGS (1)
  1. MARCAINE 0.5% W/ EPINEPHRINE [Suspect]
     Indication: JOINT ARTHROPLASTY
     Dosage: 300 CC 014
     Dates: start: 20030804, end: 20030807

REACTIONS (3)
  - OSTEOARTHRITIS [None]
  - ROTATOR CUFF REPAIR [None]
  - SYNOVITIS [None]
